FAERS Safety Report 8633923 (Version 2)
Quarter: 2023Q1

REPORT INFORMATION
  Report Type: Spontaneous
  Country: IT (occurrence: IT)
  Receive Date: 20120625
  Receipt Date: 20230131
  Transmission Date: 20230418
  Serious: Yes (Life-Threatening, Other)
  Sender: FDA-Public Use
  Company Number: IT-MYLANLABS-2012S1012077

PATIENT
  Age: 80 Year
  Sex: Male

DRUGS (1)
  1. LEVOFLOXACIN [Suspect]
     Active Substance: LEVOFLOXACIN
     Indication: Urinary tract infection
     Dosage: UNK
     Route: 065

REACTIONS (8)
  - Ocular pemphigoid [Recovering/Resolving]
  - Toxic epidermal necrolysis [Recovered/Resolved]
  - Mucous membrane pemphigoid [Recovering/Resolving]
  - Blepharospasm [Recovered/Resolved]
  - Eye irritation [Recovered/Resolved]
  - Eye inflammation [Recovered/Resolved]
  - Photophobia [Recovered/Resolved]
  - Lacrimation increased [Recovered/Resolved]

NARRATIVE: CASE EVENT DATE: 20090101
